FAERS Safety Report 8283142-2 (Version None)
Quarter: 2012Q2

REPORT INFORMATION
  Report Type: 
  Country: None (occurrence: None)
  Receive Date: 20120413
  Receipt Date: 20120402
  Transmission Date: 20120825
  Serious: Yes (Life-Threatening, Hospitalization)
  Sender: FDA-Public Use
  Company Number: FR-VIIV HEALTHCARE LIMITED-B0771599A

PATIENT
  Sex: Male

DRUGS (11)
  1. RIMIFON [Suspect]
     Indication: TUBERCULOSIS
     Dosage: 150MG TWICE PER DAY
     Route: 048
     Dates: start: 20030701
  2. CORTICOSTEROIDS [Concomitant]
     Indication: GRAND MAL CONVULSION
     Route: 065
  3. RIFADIN [Suspect]
     Indication: TUBERCULOSIS
     Dosage: 300MG TWICE PER DAY
     Route: 048
     Dates: start: 20030701
  4. ACETAMINOPHEN [Concomitant]
     Route: 065
  5. DEPAKENE [Concomitant]
     Indication: GRAND MAL CONVULSION
     Dosage: 500MG TWICE PER DAY
     Route: 065
  6. EPIVIR [Suspect]
     Indication: HIV INFECTION
     Dosage: 300MG PER DAY
     Route: 048
     Dates: start: 20030701
  7. ZERIT [Suspect]
     Indication: HIV INFECTION
     Dosage: 40MG TWICE PER DAY
     Route: 048
     Dates: start: 20030701
  8. MYAMBUTOL [Suspect]
     Indication: TUBERCULOSIS
     Route: 048
     Dates: start: 20030701
  9. OMEPRAZOLE [Concomitant]
     Dosage: 20MG PER DAY
     Route: 065
  10. BACTRIM [Concomitant]
     Indication: PROPHYLAXIS
     Dosage: 1TAB PER DAY
     Route: 065
     Dates: start: 20030101
  11. MORPHINE [Concomitant]
     Route: 065

REACTIONS (11)
  - ASTHENIA [None]
  - HEPATITIS FULMINANT [None]
  - HEPATOCELLULAR INJURY [None]
  - ENCEPHALOPATHY [None]
  - LIVER TRANSPLANT [None]
  - ABDOMINAL PAIN UPPER [None]
  - TOXICITY TO VARIOUS AGENTS [None]
  - JAUNDICE [None]
  - PAIN [None]
  - CONFUSIONAL STATE [None]
  - VOMITING [None]
